FAERS Safety Report 10103099 (Version 5)
Quarter: 2014Q4

REPORT INFORMATION
  Report Type: Spontaneous
  Country: US (occurrence: US)
  Receive Date: 20140424
  Receipt Date: 20141212
  Transmission Date: 20150528
  Serious: Yes (Other)
  Sender: FDA-Public Use
  Company Number: US-GLAXOSMITHKLINE-A1069781A

PATIENT
  Age: 71 Year
  Sex: Male
  Weight: 81.63 kg

DRUGS (42)
  1. SOMA [Concomitant]
     Active Substance: CARISOPRODOL
  2. DICLOFENAC [Concomitant]
     Active Substance: DICLOFENAC
  3. FISH OIL [Concomitant]
     Active Substance: FISH OIL
  4. SAW PALMETTO [Concomitant]
     Active Substance: SAW PALMETTO
  5. TRICOR [Concomitant]
     Active Substance: FENOFIBRATE
  6. ASPIRIN. [Concomitant]
     Active Substance: ASPIRIN
  7. LORAZEPAM. [Concomitant]
     Active Substance: LORAZEPAM
  8. AMITRIPTYLINE [Concomitant]
     Active Substance: AMITRIPTYLINE
  9. HYDROCHLOROTHIAZIDE. [Concomitant]
     Active Substance: HYDROCHLOROTHIAZIDE
  10. SIMVASTATIN. [Concomitant]
     Active Substance: SIMVASTATIN
  11. VITAMIN C [Concomitant]
     Active Substance: ASCORBIC ACID
  12. VICODIN [Concomitant]
     Active Substance: ACETAMINOPHEN\HYDROCODONE BITARTRATE
  13. HYDROCODONE ACETAMINOPHEN [Concomitant]
     Active Substance: ACETAMINOPHEN\HYDROCODONE BITARTRATE
  14. AVODART [Suspect]
     Active Substance: DUTASTERIDE
     Dosage: .5 MG, BID
  15. LISINOPRIL. [Concomitant]
     Active Substance: LISINOPRIL
  16. OSTEO BI-FLEX [Concomitant]
     Active Substance: CHONDROITIN SULFATE A\GLUCOSAMINE
  17. VITAMIN E [Concomitant]
     Active Substance: .ALPHA.-TOCOPHEROL
  18. VITAMIN D [Concomitant]
     Active Substance: CHOLECALCIFEROL
  19. AVODART [Suspect]
     Active Substance: DUTASTERIDE
     Indication: RENAL DISORDER
     Dosage: 0.5 MG, QD
     Route: 048
     Dates: start: 20140408
  20. FLOMAX [Concomitant]
     Active Substance: TAMSULOSIN HYDROCHLORIDE
  21. DOXAZOSIN [Concomitant]
     Active Substance: DOXAZOSIN\DOXAZOSIN MESYLATE
  22. LORTAB [Concomitant]
     Active Substance: ACETAMINOPHEN\HYDROCODONE BITARTRATE
  23. ACTOPLUS MET [Concomitant]
     Active Substance: METFORMIN HYDROCHLORIDE\PIOGLITAZONE HYDROCHLORIDE
  24. CRANBERRY. [Concomitant]
     Active Substance: CRANBERRY
  25. BICALUTAMIDE. [Concomitant]
     Active Substance: BICALUTAMIDE
  26. LEVOFLOXACIN. [Suspect]
     Active Substance: LEVOFLOXACIN
     Indication: DYSURIA
     Dosage: UNK, U
  27. SYNTHROID [Concomitant]
     Active Substance: LEVOTHYROXINE SODIUM
  28. NITROGLYCERIN. [Concomitant]
     Active Substance: NITROGLYCERIN
  29. VITAMIN B12 [Concomitant]
     Active Substance: CYANOCOBALAMIN
  30. CALCIUM PLUS D [Concomitant]
     Active Substance: CALCIUM\VITAMIN D
  31. CEFDINIR. [Concomitant]
     Active Substance: CEFDINIR
  32. FENOFIBRATE. [Concomitant]
     Active Substance: FENOFIBRATE
  33. CIPROFLOXACIN. [Concomitant]
     Active Substance: CIPROFLOXACIN
  34. SULFAMETHOXAZOLE-TRIMETHOPRIM (SMZ) [Concomitant]
     Active Substance: SULFAMETHOXAZOLE\TRIMETHOPRIM
  35. TUMS [Concomitant]
     Active Substance: CALCIUM CARBONATE
  36. PIOGLITAZONE [Concomitant]
     Active Substance: PIOGLITAZONE
  37. AMOX TR-K CLV [Concomitant]
     Active Substance: AMOXICILLIN\CLAVULANATE POTASSIUM
  38. PHENAZOPYRIDINE. [Concomitant]
     Active Substance: PHENAZOPYRIDINE
  39. MULTIVITAMIN [Concomitant]
     Active Substance: VITAMINS
  40. GLUCOSAMINE [Concomitant]
     Active Substance: GLUCOSAMINE
  41. CARISOPRODOL. [Concomitant]
     Active Substance: CARISOPRODOL
  42. DIAZEPAM. [Concomitant]
     Active Substance: DIAZEPAM

REACTIONS (15)
  - Pollakiuria [Not Recovered/Not Resolved]
  - Neoplasm prostate [Not Recovered/Not Resolved]
  - Enema administration [Unknown]
  - Constipation [Unknown]
  - Renal cancer [Not Recovered/Not Resolved]
  - Prostatic disorder [Unknown]
  - Prescribed overdose [Unknown]
  - Renal disorder [Not Recovered/Not Resolved]
  - Prostate ablation [Unknown]
  - Prostate cancer [Unknown]
  - Biopsy [Recovered/Resolved]
  - Escherichia infection [Recovered/Resolved]
  - Prostatic specific antigen increased [Not Recovered/Not Resolved]
  - Dysuria [Unknown]
  - Urinary tract infection [Not Recovered/Not Resolved]

NARRATIVE: CASE EVENT DATE: 20140725
